FAERS Safety Report 5010783-8 (Version None)
Quarter: 2006Q2

REPORT INFORMATION
  Report Type: 
  Country: None (occurrence: None)
  Receive Date: 20060525
  Receipt Date: 20060517
  Transmission Date: 20061013
  Serious: Yes (Hospitalization)
  Sender: FDA-Public Use
  Company Number: US-AVENTIS-200615416GDDC

PATIENT
  Age: 59 Year
  Sex: Male
  Weight: 77.2 kg

DRUGS (3)
  1. DOCETAXEL [Suspect]
     Indication: NEOPLASM MALIGNANT
     Route: 042
     Dates: start: 20060501, end: 20060501
  2. ERBITUX [Suspect]
     Indication: NEOPLASM MALIGNANT
     Dates: end: 20060501
  3. RADIOTHERAPY [Suspect]
     Indication: NEOPLASM MALIGNANT
     Dosage: DOSE: EXTERNAL BEAM; IMRT; 15 FRACTIONS; 19 ELAPSED DAYS; 3000 GY TOTAL DOSE TO DATE
     Dates: end: 20060505

REACTIONS (7)
  - ASPIRATION [None]
  - EXFOLIATIVE RASH [None]
  - MOUTH ULCERATION [None]
  - MUCOSAL INFLAMMATION [None]
  - ORAL PAIN [None]
  - PRODUCTIVE COUGH [None]
  - PYREXIA [None]
